FAERS Safety Report 4422556-5 (Version None)
Quarter: 2004Q3

REPORT INFORMATION
  Report Type: 
  Country: None (occurrence: None)
  Receive Date: 20040810
  Receipt Date: 20040805
  Transmission Date: 20050211
  Serious: Yes (Other)
  Sender: FDA-Public Use
  Company Number: PHBS2004CA10399

PATIENT
  Sex: Male

DRUGS (4)
  1. DIOVAN [Suspect]
     Indication: HYPERTENSION
     Dosage: 160 MG/DAY
     Route: 048
  2. AVANDIA [Concomitant]
  3. AGGRENOX [Concomitant]
  4. SIMVASTATIN [Concomitant]

REACTIONS (1)
  - MICROALBUMINURIA [None]
